FAERS Safety Report 7896862-6 (Version None)
Quarter: 2011Q4

REPORT INFORMATION
  Report Type: 
  Country: None (occurrence: None)
  Receive Date: 20111107
  Receipt Date: 20110415
  Transmission Date: 20120403
  Serious: Yes (Other)
  Sender: FDA-Public Use
  Company Number: US-BAYER-2011-017850

PATIENT
  Age: 45 Year
  Sex: Female
  Weight: 72.562 kg

DRUGS (18)
  1. PROHANCE [Suspect]
     Indication: ANGIOGRAM
  2. MAGNEVIST [Suspect]
     Indication: ANGIOGRAM
  3. PROHANCE [Suspect]
     Indication: NUCLEAR MAGNETIC RESONANCE IMAGING
  4. MAGNEVIST [Suspect]
     Indication: NUCLEAR MAGNETIC RESONANCE IMAGING
  5. OMNISCAN [Suspect]
  6. OPTIMARK [Suspect]
     Indication: NUCLEAR MAGNETIC RESONANCE IMAGING
  7. OPTIMARK [Suspect]
     Indication: ANGIOGRAM
  8. OMNISCAN [Suspect]
     Indication: NUCLEAR MAGNETIC RESONANCE IMAGING BRAIN
  9. RENAGEL [Concomitant]
  10. OMNISCAN [Suspect]
     Indication: ANGIOGRAM
     Dosage: UNK
     Dates: start: 20070101, end: 20070101
  11. MULTIHANCE [Suspect]
     Indication: ANGIOGRAM
  12. ASPIRIN [Concomitant]
  13. RIFAMPIN [Concomitant]
  14. MULTIHANCE [Suspect]
     Indication: NUCLEAR MAGNETIC RESONANCE IMAGING
     Dosage: 18 ML, ONCE
     Dates: start: 20090519, end: 20090519
  15. ZOLOFT [Concomitant]
  16. OMNISCAN [Suspect]
     Indication: NUCLEAR MAGNETIC RESONANCE IMAGING
     Dosage: 20 ML, ONCE
     Dates: start: 20040423, end: 20040423
  17. MULTIHANCE [Suspect]
  18. PLAQUENIL [Concomitant]

REACTIONS (6)
  - PAIN [None]
  - SKIN FIBROSIS [None]
  - SKIN INDURATION [None]
  - SKIN EXFOLIATION [None]
  - NEPHROGENIC SYSTEMIC FIBROSIS [None]
  - SKIN DISCOLOURATION [None]
